FAERS Safety Report 13573997 (Version 1)
Quarter: 2017Q2

REPORT INFORMATION
  Report Type: Spontaneous
  Country: US (occurrence: US)
  Receive Date: 20170523
  Receipt Date: 20170523
  Transmission Date: 20170830
  Serious: No
  Sender: FDA-Public Use
  Company Number: US-BAYER-2017-086376

PATIENT
  Sex: Male

DRUGS (1)
  1. MIRALAX [Suspect]
     Active Substance: POLYETHYLENE GLYCOL 3350
     Indication: CONSTIPATION
     Dosage: LITTLE LESS THAN A CAPFUL DOSE
     Route: 048
     Dates: start: 201703, end: 20170504

REACTIONS (7)
  - Drug ineffective for unapproved indication [None]
  - Pain [Unknown]
  - Product use in unapproved indication [Unknown]
  - Product use issue [Not Recovered/Not Resolved]
  - Back pain [Unknown]
  - Underdose [Unknown]
  - Pain in extremity [Unknown]

NARRATIVE: CASE EVENT DATE: 201703
